FAERS Safety Report 20416367 (Version 1)
Quarter: 2022Q1

REPORT INFORMATION
  Report Type: Spontaneous
  Country: FR (occurrence: FR)
  Receive Date: 20220202
  Receipt Date: 20220202
  Transmission Date: 20220423
  Serious: Yes (Death, Other)
  Sender: FDA-Public Use
  Company Number: FR-STADA-241570

PATIENT
  Age: 44 Year
  Sex: Female

DRUGS (5)
  1. NINTEDANIB [Suspect]
     Active Substance: NINTEDANIB
     Indication: Pulmonary fibrosis
     Route: 065
     Dates: start: 2016
  2. PIRFENIDONE [Suspect]
     Active Substance: PIRFENIDONE
     Indication: Pulmonary fibrosis
     Route: 065
     Dates: start: 2016
  3. PEMETREXED [Suspect]
     Active Substance: PEMETREXED
     Indication: Lung neoplasm malignant
     Dosage: FOUR CYCLES OF MAINTENANCE
     Route: 065
  4. CARBOPLATIN [Suspect]
     Active Substance: CARBOPLATIN
     Indication: Lung neoplasm malignant
     Dosage: AREA UNDER THE CURVE 5 MG.ML-1.MIN-1
     Route: 065
  5. PREDNISONE [Concomitant]
     Active Substance: PREDNISONE
     Indication: Pulmonary fibrosis
     Route: 065
     Dates: start: 201412, end: 201606

REACTIONS (3)
  - Lung neoplasm malignant [Fatal]
  - Nausea [Fatal]
  - Abdominal pain [Fatal]

NARRATIVE: CASE EVENT DATE: 20200601
